FAERS Safety Report 17093650 (Version 1)
Quarter: 2019Q4

REPORT INFORMATION
  Report Type: Spontaneous
  Country: US (occurrence: US)
  Receive Date: 20191129
  Receipt Date: 20191129
  Transmission Date: 20200122
  Serious: Yes (Other)
  Sender: FDA-Public Use
  Company Number: US-ASTRAZENECA-2019SF68280

PATIENT
  Age: 21657 Day
  Sex: Male
  Weight: 104.3 kg

DRUGS (28)
  1. LOSARTAN. [Concomitant]
     Active Substance: LOSARTAN
  2. GUAIFENEX [Concomitant]
     Active Substance: GUAIFENESIN\PHENYLEPHRINE\PHENYLPROPANOLAMINE
  3. FLUTICASONE. [Concomitant]
     Active Substance: FLUTICASONE
  4. HYZAAR [Concomitant]
     Active Substance: HYDROCHLOROTHIAZIDE\LOSARTAN POTASSIUM
  5. TRAMADOL. [Concomitant]
     Active Substance: TRAMADOL
  6. VALSARTAN. [Concomitant]
     Active Substance: VALSARTAN
  7. TYLENOL [Concomitant]
     Active Substance: ACETAMINOPHEN
  8. PREVACID [Suspect]
     Active Substance: LANSOPRAZOLE
     Indication: GASTROOESOPHAGEAL REFLUX DISEASE
     Route: 065
     Dates: start: 20061222, end: 20080621
  9. LISINOPRIL. [Concomitant]
     Active Substance: LISINOPRIL
  10. AMOX [Concomitant]
     Active Substance: UNSPECIFIED INGREDIENT
  11. KETEK [Concomitant]
     Active Substance: TELITHROMYCIN
  12. TESTIM [Concomitant]
     Active Substance: TESTOSTERONE
  13. PRILOSEC OTC [Suspect]
     Active Substance: OMEPRAZOLE MAGNESIUM
     Indication: GASTROOESOPHAGEAL REFLUX DISEASE
     Dosage: DAILY
     Route: 048
     Dates: start: 2011, end: 2018
  14. CARVEDILOL. [Concomitant]
     Active Substance: CARVEDILOL
  15. PLAVIX [Concomitant]
     Active Substance: CLOPIDOGREL BISULFATE
  16. TRAZODONE [Concomitant]
     Active Substance: TRAZODONE HYDROCHLORIDE
  17. IBUPROFEN. [Concomitant]
     Active Substance: IBUPROFEN
  18. NEXIUM 24HR [Suspect]
     Active Substance: ESOMEPRAZOLE MAGNESIUM
     Indication: GASTROOESOPHAGEAL REFLUX DISEASE
     Dosage: DAILY
     Route: 048
     Dates: start: 2011, end: 2018
  19. AZITHROMYCIN ANHYDROUS. [Concomitant]
     Active Substance: AZITHROMYCIN ANHYDROUS
  20. TAMSULOSIN [Concomitant]
     Active Substance: TAMSULOSIN
  21. ATORVASTATIN [Concomitant]
     Active Substance: ATORVASTATIN
  22. ZOLPIDEM [Concomitant]
     Active Substance: ZOLPIDEM TARTRATE
  23. KLOR-CON [Concomitant]
     Active Substance: POTASSIUM CHLORIDE
  24. AMOXICILLIN. [Concomitant]
     Active Substance: AMOXICILLIN
  25. AMLODIPINE [Concomitant]
     Active Substance: AMLODIPINE BESYLATE
  26. SILDENAFIL. [Concomitant]
     Active Substance: SILDENAFIL
  27. AMBIEN [Concomitant]
     Active Substance: ZOLPIDEM TARTRATE
  28. RANITIDINE. [Concomitant]
     Active Substance: RANITIDINE

REACTIONS (4)
  - Renal failure [Not Recovered/Not Resolved]
  - Acute kidney injury [Unknown]
  - Tubulointerstitial nephritis [Unknown]
  - Chronic kidney disease [Not Recovered/Not Resolved]

NARRATIVE: CASE EVENT DATE: 20080604
